FAERS Safety Report 19570587 (Version 5)
Quarter: 2022Q1

REPORT INFORMATION
  Report Type: Report from Study
  Country: US (occurrence: US)
  Receive Date: 20210715
  Receipt Date: 20220122
  Transmission Date: 20220423
  Serious: Yes (Hospitalization, Other)
  Sender: FDA-Public Use
  Company Number: NVSC2021US153358

PATIENT
  Sex: Male

DRUGS (3)
  1. ENTRESTO [Suspect]
     Active Substance: SACUBITRIL\VALSARTAN
     Indication: Cardiac failure chronic
     Dosage: 50 MG, BID (24/26MG)
     Route: 048
     Dates: start: 20210628
  2. METOLAZONE [Suspect]
     Active Substance: METOLAZONE
     Indication: Product used for unknown indication
     Dosage: UNK UNK, BIW
     Route: 065
  3. LASIX [Suspect]
     Active Substance: FUROSEMIDE
     Indication: Product used for unknown indication
     Dosage: UNK, BIW
     Route: 065

REACTIONS (8)
  - Renal failure [Unknown]
  - Anuria [Unknown]
  - Weight increased [Unknown]
  - Fatigue [Unknown]
  - Decreased activity [Unknown]
  - Oedema peripheral [Unknown]
  - Back pain [Unknown]
  - Hypotension [Unknown]
